FAERS Safety Report 8913568 (Version 1)
Quarter: 2012Q4

REPORT INFORMATION
  Report Type: 
  Country: US (occurrence: US)
  Receive Date: 20121119
  Receipt Date: 20121119
  Transmission Date: 20130627
  Serious: No
  Sender: FDA-Public Use
  Company Number: US-009507513-1211USA007107

PATIENT
  Age: 83 Year
  Sex: Male

DRUGS (2)
  1. LISINOPRIL [Suspect]
     Indication: BLOOD PRESSURE
     Dosage: 40 mg, UNK
     Route: 048
  2. LISINOPRIL [Suspect]
     Dosage: 10 mg, qd
     Route: 048
     Dates: start: 20121101, end: 20121111

REACTIONS (3)
  - Cough [Recovered/Resolved]
  - Cough [Recovering/Resolving]
  - Therapeutic response unexpected [Unknown]
